FAERS Safety Report 5028098-0 (Version None)
Quarter: 2006Q2

REPORT INFORMATION
  Report Type: 
  Country: None (occurrence: None)
  Receive Date: 20060501
  Receipt Date: 20060201
  Transmission Date: 20061013
  Serious: No
  Sender: FDA-Public Use
  Company Number: 200610464US

PATIENT
  Age: 60 Year
  Sex: Female

DRUGS (2)
  1. KETEK [Suspect]
     Indication: SINUS HEADACHE
     Dosage: 800 MG QD PO
     Route: 048
     Dates: start: 20060105, end: 20060108
  2. ESTROGEN NOS [Concomitant]

REACTIONS (5)
  - PHOTOPSIA [None]
  - VISION BLURRED [None]
  - VISUAL BRIGHTNESS [None]
  - VISUAL DISTURBANCE [None]
  - VITREOUS FLOATERS [None]
